FAERS Safety Report 11829975 (Version 2)
Quarter: 2015Q4

REPORT INFORMATION
  Report Type: Spontaneous
  Country: PT (occurrence: PT)
  Receive Date: 20151213
  Receipt Date: 20151215
  Transmission Date: 20160305
  Serious: Yes (Other)
  Sender: FDA-Public Use
  Company Number: PT-TEVA-618157ISR

PATIENT
  Age: 80 Year
  Sex: Female

DRUGS (2)
  1. LETROZOLE. [Suspect]
     Active Substance: LETROZOLE
     Indication: HORMONE THERAPY
     Dosage: 2.5 MILLIGRAM DAILY;
     Dates: start: 201010
  2. HYDROXYCHLOROQUINE [Concomitant]
     Active Substance: HYDROXYCHLOROQUINE
     Indication: CUTANEOUS LUPUS ERYTHEMATOSUS

REACTIONS (2)
  - Cutaneous lupus erythematosus [Recovering/Resolving]
  - Hormone level abnormal [Recovering/Resolving]

NARRATIVE: CASE EVENT DATE: 201011
